FAERS Safety Report 9744558 (Version 1)
Quarter: 2013Q4

REPORT INFORMATION
  Report Type: Spontaneous
  Country: IT (occurrence: IT)
  Receive Date: 20131210
  Receipt Date: 20131210
  Transmission Date: 20140711
  Serious: Yes (Other)
  Sender: FDA-Public Use
  Company Number: IT-ABBVIE-13P-083-1177975-00

PATIENT
  Age: 55 Year
  Sex: Male

DRUGS (2)
  1. DEPAKIN [Suspect]
     Indication: PRODUCT USED FOR UNKNOWN INDICATION
     Dosage: MODIFIED RELEASE
     Route: 048
     Dates: start: 20131022, end: 20131025
  2. OLANZAPINA [Interacting]
     Indication: PSYCHOTIC DISORDER
     Route: 048
     Dates: start: 20131017, end: 20131025

REACTIONS (5)
  - Liver injury [Unknown]
  - Alanine aminotransferase increased [Unknown]
  - Aspartate aminotransferase increased [Unknown]
  - Blood creatine phosphokinase increased [Unknown]
  - Drug interaction [Unknown]
